FAERS Safety Report 19731993 (Version 1)
Quarter: 2021Q3

REPORT INFORMATION
  Report Type: Spontaneous
  Country: US (occurrence: US)
  Receive Date: 20210820
  Receipt Date: 20210820
  Transmission Date: 20211014
  Serious: Yes (Hospitalization)
  Sender: FDA-Public Use
  Company Number: None

PATIENT
  Age: 69 Year
  Sex: Male
  Weight: 78.8 kg

DRUGS (12)
  1. BUPROPION 2018 ? [Concomitant]
  2. POTASSIUM CHLORIDE 07/08/2021 [Concomitant]
  3. MIRACLE MOUTHWASH 06/16/2021 ? [Concomitant]
  4. NORMAL SALINE 0.9% 06/02/2021 ? [Concomitant]
  5. ATORVASTATIN 2011 ? [Concomitant]
  6. CISPLATIN. [Suspect]
     Active Substance: CISPLATIN
     Indication: NEOPLASM MALIGNANT
     Dosage: ?          OTHER DOSE:100MG/M^2;OTHER ROUTE:IV?
     Dates: start: 20210602, end: 20210623
  7. ONDANSETRON 06/02/2021 ? [Concomitant]
  8. RADIOTHERAPY [Suspect]
     Active Substance: RADIATION THERAPY
     Indication: NEOPLASM MALIGNANT
     Dosage: ?OTHER DOSE:2GY;?OTHER FREQUENCY:WEEKDAYS;?OTHER ROUTE:N/A?
     Dates: start: 20210602, end: 20210726
  9. ALPRAZOLAM 2018 ? [Concomitant]
  10. MAGNESIUM SULFATE 07/08/2021 ? [Concomitant]
  11. LISINOPRIL 2017 ? [Concomitant]
  12. CLOTRIMAZOLE 08/05/2021 ? [Concomitant]

REACTIONS (3)
  - Nausea [None]
  - Weight decreased [None]
  - Fluid intake reduced [None]

NARRATIVE: CASE EVENT DATE: 20210818
